FAERS Safety Report 6046035-7 (Version None)
Quarter: 2009Q1

REPORT INFORMATION
  Report Type: 
  Country: None (occurrence: None)
  Receive Date: 20090116
  Receipt Date: 20090106
  Transmission Date: 20090719
  Serious: Yes (Death, Life-Threatening, Hospitalization, Other)
  Sender: FDA-Public Use
  Company Number: 55766

PATIENT
  Age: 12 Year
  Sex: Female

DRUGS (2)
  1. THIOTEPA [Suspect]
     Indication: BONE MARROW TRANSPLANT
  2. CARBOPLATIN [Suspect]

REACTIONS (4)
  - AREFLEXIA [None]
  - ASTHENIA [None]
  - HYPOAESTHESIA [None]
  - MALIGNANT NEOPLASM PROGRESSION [None]
